FAERS Safety Report 5678129-X (Version None)
Quarter: 2008Q1

REPORT INFORMATION
  Report Type: 
  Country: None (occurrence: None)
  Receive Date: 20080319
  Receipt Date: 20080310
  Transmission Date: 20080703
  Serious: Yes (Hospitalization)
  Sender: FDA-Public Use
  Company Number: 2008-00846

PATIENT
  Age: 70 Year
  Sex: Male

DRUGS (6)
  1. VELCADE [Suspect]
     Indication: MULTIPLE MYELOMA
     Dosage: 2.70 MG, INTRAVENOUS
     Route: 042
     Dates: start: 20080129, end: 20080201
  2. ACETAMINOPHEN [Concomitant]
  3. COCILLANA (COCILLANA) [Concomitant]
  4. PREDNISOLONE [Concomitant]
  5. KODEIN RECIP [Concomitant]
  6. EUSAPRIM FORTE (SULFAMETHOXAZOLE, TRIMETHOPRIM) [Concomitant]

REACTIONS (3)
  - BLOOD CREATININE INCREASED [None]
  - DYSPNOEA [None]
  - GENERAL PHYSICAL HEALTH DETERIORATION [None]
